FAERS Safety Report 7444155-3 (Version None)
Quarter: 2011Q2

REPORT INFORMATION
  Report Type: 
  Country: None (occurrence: None)
  Receive Date: 20110419
  Receipt Date: 20110405
  Transmission Date: 20111010
  Serious: Yes (Hospitalization, Other)
  Sender: FDA-Public Use
  Company Number: CIP11000529

PATIENT
  Age: 71 Year
  Sex: Female

DRUGS (8)
  1. NEXIUM /01479301/ (ESOMERPRAZOLE MAGNESIUM) [Concomitant]
  2. HYDROCORTONE [Concomitant]
  3. LIPITOR [Concomitant]
  4. KERALAC (UREA) [Concomitant]
  5. ACIPHEX [Concomitant]
  6. VYTORIN [Concomitant]
  7. ACTONEL [Suspect]
     Dosage: 35MG, ORAL
     Route: 048
     Dates: start: 20040517, end: 20061015
  8. BONIVA [Suspect]
     Dosage: 150 MG ONCE MONTHLY
     Dates: start: 20061015

REACTIONS (9)
  - JOINT SWELLING [None]
  - PATHOLOGICAL FRACTURE [None]
  - ANAEMIA POSTOPERATIVE [None]
  - HAEMORRHAGIC ANAEMIA [None]
  - HYPOKALAEMIA [None]
  - ARTHRALGIA [None]
  - FALL [None]
  - GAIT DISTURBANCE [None]
  - FEMUR FRACTURE [None]
